FAERS Safety Report 4337409-0 (Version None)
Quarter: 2004Q2

REPORT INFORMATION
  Report Type: 
  Country: None (occurrence: None)
  Receive Date: 20040408
  Receipt Date: 20040329
  Transmission Date: 20050107
  Serious: Yes (Life-Threatening)
  Sender: FDA-Public Use
  Company Number: GB-JNJFOC-20040306310

PATIENT
  Age: 31 Year
  Sex: Female

DRUGS (6)
  1. REMICADE [Suspect]
     Indication: PSORIATIC ARTHROPATHY
     Dosage: 250 MG, INTRAVENOUS
     Route: 042
     Dates: start: 20021030, end: 20031111
  2. METHOTREXATE [Concomitant]
  3. FOLIC ACID [Concomitant]
  4. INDOMETHACIN [Concomitant]
  5. ACETAMINOPHEN [Concomitant]
  6. MICROGYNON (EUGYNON) [Concomitant]

REACTIONS (1)
  - CERVIX CARCINOMA STAGE 0 [None]
